FAERS Safety Report 9354129 (Version 1)
Quarter: 2013Q2

REPORT INFORMATION
  Report Type: Spontaneous
  Country: US (occurrence: None)
  Receive Date: 20130613
  Receipt Date: 20130613
  Transmission Date: 20140414
  Serious: Yes (Death)
  Sender: FDA-Public Use
  Company Number: CABO-13002803

PATIENT
  Age: 42 Year
  Sex: Female
  Weight: 51.8 kg

DRUGS (6)
  1. COMETRIQ [Suspect]
     Indication: THYROID CANCER
     Route: 048
     Dates: start: 20130130
  2. LEVOTHYROXINE (LEVOTHYROXINE) [Concomitant]
  3. ZOLPIDEM (ZOLPIDEM) [Concomitant]
  4. NEXIUM (ESOMEPRAZOLE SODIUM) [Concomitant]
  5. ZOMETA (ZOLEDRONIC ACID) [Concomitant]
  6. DILAUDID (HYDROMORPHONE HYDROCHLORIDE) INJECTION [Concomitant]

REACTIONS (3)
  - Dry skin [None]
  - Neuropathy peripheral [None]
  - Alopecia [None]
